FAERS Safety Report 8276791-9 (Version None)
Quarter: 2012Q2

REPORT INFORMATION
  Report Type: 
  Country: None (occurrence: None)
  Receive Date: 20120412
  Receipt Date: 20120403
  Transmission Date: 20120825
  Serious: Yes (Other)
  Sender: FDA-Public Use
  Company Number: US-JNJFOC-20120401877

PATIENT
  Sex: Male
  Weight: 87.09 kg

DRUGS (7)
  1. DIGOXIN [Concomitant]
     Indication: ATRIAL FIBRILLATION
     Route: 048
  2. XARELTO [Suspect]
     Route: 048
     Dates: start: 20120330, end: 20120330
  3. LISINOPRIL [Concomitant]
     Indication: HYPERTENSION
  4. THYROID TAB [Concomitant]
     Indication: THYROID DISORDER
     Route: 048
  5. AVODART [Concomitant]
     Indication: PROSTATIC DISORDER
     Route: 048
  6. DILTIAZEM HCL [Concomitant]
     Indication: CARDIAC DISORDER
     Route: 048
  7. XARELTO [Suspect]
     Indication: ATRIAL FIBRILLATION
     Route: 048
     Dates: start: 20120402

REACTIONS (6)
  - INTERNATIONAL NORMALISED RATIO INCREASED [None]
  - INJECTION SITE HAEMATOMA [None]
  - CONTUSION [None]
  - BLOOD URINE PRESENT [None]
  - CHROMATURIA [None]
  - URETHRAL PAIN [None]
